FAERS Safety Report 7897977-9 (Version None)
Quarter: 2011Q4

REPORT INFORMATION
  Report Type: 
  Country: None (occurrence: None)
  Receive Date: 20111107
  Receipt Date: 20111107
  Transmission Date: 20120403
  Serious: Yes (Life-Threatening)
  Sender: FDA-Public Use
  Company Number: None

PATIENT
  Age: 23 Year
  Sex: Male
  Weight: 78 kg

DRUGS (14)
  1. GUAIFENESIN [Concomitant]
  2. LEVOFLOXACIN [Concomitant]
     Dosage: 500MG
     Route: 048
     Dates: start: 20111027, end: 20111027
  3. DOCUSATE-SENNA [Concomitant]
  4. VANCOMYCIN [Concomitant]
  5. FUROSEMIDE [Concomitant]
  6. PANTOPRAZOLE [Concomitant]
  7. MEROPENEM [Concomitant]
  8. PIP/TAZOBACTAM [Concomitant]
  9. AUGMENTIN [Concomitant]
     Route: 048
  10. METOCLOPRAMIDE [Concomitant]
  11. MOXIFLOXACIN [Suspect]
     Indication: BACTERAEMIA
     Dosage: 400MG
     Route: 048
     Dates: start: 20111028, end: 20111029
  12. METOPROLOL [Concomitant]
     Route: 048
  13. HYDRALAZINE HCL [Concomitant]
  14. WARFARIN SODIUM [Concomitant]

REACTIONS (2)
  - ACUTE HEPATIC FAILURE [None]
  - RENAL FAILURE ACUTE [None]
